FAERS Safety Report 14163363 (Version 2)
Quarter: 2017Q4

REPORT INFORMATION
  Report Type: Spontaneous
  Country: US (occurrence: US)
  Receive Date: 20171107
  Receipt Date: 20171107
  Transmission Date: 20180321
  Serious: Yes (Hospitalization)
  Sender: FDA-Public Use
  Company Number: US-BIOGEN-2017BI00480281

PATIENT
  Age: 61 Year
  Sex: Female

DRUGS (2)
  1. BACLOFEN. [Concomitant]
     Active Substance: BACLOFEN
     Indication: PRODUCT USED FOR UNKNOWN INDICATION
     Route: 065
  2. AVONEX [Suspect]
     Active Substance: INTERFERON BETA-1A
     Indication: MULTIPLE SCLEROSIS
     Route: 065
     Dates: start: 20010726

REACTIONS (15)
  - Lethargy [Recovered/Resolved]
  - Muscle twitching [Recovered/Resolved]
  - Multiple sclerosis relapse [Recovered/Resolved]
  - Disturbance in attention [Unknown]
  - Muscular weakness [Recovered/Resolved]
  - Asthenia [Not Recovered/Not Resolved]
  - Seizure [Recovered/Resolved]
  - Drug interaction [Not Recovered/Not Resolved]
  - Gait inability [Not Recovered/Not Resolved]
  - Pyrexia [Recovered/Resolved]
  - Dysarthria [Recovered/Resolved]
  - Crying [Recovered/Resolved]
  - Pain in extremity [Recovered/Resolved]
  - Insomnia [Recovered/Resolved]
  - Confusional state [Not Recovered/Not Resolved]

NARRATIVE: CASE EVENT DATE: 20170916
